FAERS Safety Report 17756851 (Version 1)
Quarter: 2020Q2

REPORT INFORMATION
  Report Type: Report from Study
  Country: CA (occurrence: CA)
  Receive Date: 20200507
  Receipt Date: 20200507
  Transmission Date: 20200714
  Serious: Yes (Other)
  Sender: FDA-Public Use
  Company Number: CA-TEVA-2020-CA-1231498

PATIENT
  Age: 15 Year
  Sex: Male

DRUGS (6)
  1. GEMCITABINE. [Suspect]
     Active Substance: GEMCITABINE
     Indication: SALVAGE THERAPY
     Dosage: 800 MG/M2 DAILY; ON DAYS 1 AND 4; IGEV REGIMEN
     Route: 042
  2. METHYLPREDNISOLONE. [Suspect]
     Active Substance: METHYLPREDNISOLONE
     Indication: SALVAGE THERAPY
     Dosage: 100 MILLIGRAM DAILY; ON DAYS 1-4; IGEV REGIMEN
     Route: 065
  3. MESNA. [Concomitant]
     Active Substance: MESNA
     Indication: SUPPORTIVE CARE
     Dosage: 2000 MG/M2 DAILY;
     Route: 065
  4. FILGRASTIM [Concomitant]
     Active Substance: FILGRASTIM
     Indication: SUPPORTIVE CARE
     Dosage: 5 MICROG/KG/DOSE
     Route: 065
  5. VINORELBINE [Suspect]
     Active Substance: VINORELBINE TARTRATE
     Indication: SALVAGE THERAPY
     Dosage: 25 MG/M2/DOSE (DAYS 1 AND 5); IGEV REGIMEN
     Route: 065
  6. IFOSFAMIDE. [Suspect]
     Active Substance: IFOSFAMIDE
     Indication: SALVAGE THERAPY
     Dosage: 2000 MG/M2 DAILY; ON DAYS 1-4; IGEV REGIMEN
     Route: 065

REACTIONS (1)
  - Neutropenia [Recovered/Resolved]
